FAERS Safety Report 6640357-4 (Version None)
Quarter: 2010Q1

REPORT INFORMATION
  Report Type: 
  Country: None (occurrence: None)
  Receive Date: 20100303
  Receipt Date: 20090320
  Transmission Date: 20100710
  Serious: No
  Sender: FDA-Public Use
  Company Number: 281120

PATIENT
  Age: 10 Year
  Sex: Male
  Weight: 51.3 kg

DRUGS (3)
  1. NOVOLIN N [Suspect]
     Indication: TYPE 1 DIABETES MELLITUS
     Dosage: 32 IU, TID, SUBCUTANEOUS; SEE IMAGE
     Route: 058
     Dates: start: 20030209, end: 20081105
  2. NOVOLIN N [Suspect]
     Indication: TYPE 1 DIABETES MELLITUS
     Dosage: 32 IU, TID, SUBCUTANEOUS; SEE IMAGE
     Route: 058
     Dates: start: 20081106
  3. NOVOLIN R [Suspect]
     Indication: TYPE 1 DIABETES MELLITUS
     Dosage: 3 IU, QD, SUBCUTANEOUS
     Route: 058
     Dates: start: 20030209

REACTIONS (1)
  - BLOOD GLUCOSE DECREASED [None]
